FAERS Safety Report 8471730-X (Version None)
Quarter: 2012Q2

REPORT INFORMATION
  Report Type: 
  Country: None (occurrence: None)
  Receive Date: 20120627
  Receipt Date: 20120621
  Transmission Date: 20120825
  Serious: Yes (Other)
  Sender: FDA-Public Use
  Company Number: IT-GLAXOSMITHKLINE-B0810640A

PATIENT
  Sex: Male

DRUGS (1)
  1. WELLBUTRIN [Suspect]
     Indication: PRODUCT USED FOR UNKNOWN INDICATION
     Route: 065
     Dates: start: 20120424, end: 20120424

REACTIONS (4)
  - TINNITUS [None]
  - HYPERTENSIVE CRISIS [None]
  - EYELID BLEEDING [None]
  - PARAESTHESIA ORAL [None]
